FAERS Safety Report 7961333-5 (Version None)
Quarter: 2011Q4

REPORT INFORMATION
  Report Type: 
  Country: None (occurrence: None)
  Receive Date: 20111202
  Receipt Date: 20111121
  Transmission Date: 20120403
  Serious: Yes (Other)
  Sender: FDA-Public Use
  Company Number: UCM201111-000077

PATIENT
  Age: 56 Year
  Sex: Male

DRUGS (3)
  1. CLOZAPINE [Suspect]
     Indication: SCHIZOPHRENIA
     Dosage: 550-100 MG/DAY,  100 MG DAILY
  2. HALOPERIDOL [Suspect]
     Indication: SCHIZOPHRENIA
     Dosage: 10MG TWICE DAILY
  3. DIVALPROEX SODIUM [Suspect]

REACTIONS (2)
  - THROMBOCYTOPENIA [None]
  - ELECTROCARDIOGRAM QT PROLONGED [None]
